FAERS Safety Report 22596216 (Version 1)
Quarter: 2023Q2

REPORT INFORMATION
  Report Type: Spontaneous
  Country: US (occurrence: US)
  Receive Date: 20230613
  Receipt Date: 20230613
  Transmission Date: 20230722
  Serious: No
  Sender: FDA-Public Use
  Company Number: US-RIGEL Pharmaceuticals, INC - 2022FOS000821

PATIENT
  Sex: Female
  Weight: 62.585 kg

DRUGS (2)
  1. TAVALISSE [Suspect]
     Active Substance: FOSTAMATINIB
     Indication: Thrombocytopenia
     Dosage: 100 MG, BID
     Route: 048
     Dates: start: 20220629, end: 20220926
  2. TAVALISSE [Suspect]
     Active Substance: FOSTAMATINIB
     Indication: Haemolytic anaemia

REACTIONS (4)
  - Chromaturia [Unknown]
  - Off label use [Unknown]
  - Liver function test increased [Unknown]
  - Abdominal pain upper [Unknown]

NARRATIVE: CASE EVENT DATE: 20220101
